FAERS Safety Report 7932423-8 (Version None)
Quarter: 2011Q4

REPORT INFORMATION
  Report Type: 
  Country: None (occurrence: None)
  Receive Date: 20111122
  Receipt Date: 20111107
  Transmission Date: 20120403
  Serious: Yes (Disabling)
  Sender: FDA-Public Use
  Company Number: FR-BIOGENIDEC-2011BI033252

PATIENT
  Age: 67 Year
  Sex: Male

DRUGS (5)
  1. AVONEX [Suspect]
     Indication: MULTIPLE SCLEROSIS
     Route: 030
     Dates: start: 20110201, end: 20110201
  2. AVONEX [Suspect]
     Route: 030
     Dates: start: 20110201, end: 20110701
  3. XANAX [Concomitant]
     Dates: end: 20110325
  4. ZOLPIDEM TARTRATE [Concomitant]
     Dates: end: 20110325
  5. ESCITALOPRAM OXALATE [Concomitant]
     Dates: end: 20110325

REACTIONS (1)
  - OCULAR MYASTHENIA [None]
